FAERS Safety Report 5523958-6 (Version None)
Quarter: 2007Q4

REPORT INFORMATION
  Report Type: 
  Country: None (occurrence: None)
  Receive Date: 20071121
  Receipt Date: 20071112
  Transmission Date: 20080405
  Serious: Yes (Other)
  Sender: FDA-Public Use
  Company Number: BE-ABBOTT-07P-013-0424417-00

PATIENT
  Sex: Female

DRUGS (1)
  1. HUMIRA [Suspect]
     Indication: RHEUMATOID ARTHRITIS
     Dates: start: 20040927, end: 20070801

REACTIONS (3)
  - DRUG TOXICITY [None]
  - RASH [None]
  - RESPIRATORY DISORDER [None]
